FAERS Safety Report 16145284 (Version 2)
Quarter: 2019Q2

REPORT INFORMATION
  Report Type: Report from Study
  Country: US (occurrence: US)
  Receive Date: 20190402
  Receipt Date: 20190522
  Transmission Date: 20190711
  Serious: Yes (Life-Threatening, Hospitalization)
  Sender: FDA-Public Use
  Company Number: US-BAXTER-2019BAX006119

PATIENT
  Age: 74 Year
  Sex: Female
  Weight: 69 kg

DRUGS (35)
  1. PEGFILGRASTIM [Suspect]
     Active Substance: PEGFILGRASTIM
     Indication: ACUTE LYMPHOCYTIC LEUKAEMIA
     Dosage: REGIMEN A: CYCLES: 1, 3, 7, 9: 6 MG CYCLIC (ON DAY 4 UNTIL RECOVERY OF GRANULOCYTE COUNT)
     Route: 058
  2. TENORMIN [Concomitant]
     Active Substance: ATENOLOL
     Indication: PRODUCT USED FOR UNKNOWN INDICATION
     Route: 065
  3. LIPITOR [Concomitant]
     Active Substance: ATORVASTATIN CALCIUM
     Indication: PRODUCT USED FOR UNKNOWN INDICATION
     Route: 065
  4. MESNEX [Suspect]
     Active Substance: MESNA
     Dosage: LAST DOSE PRIOR TO SAE
     Route: 042
     Dates: start: 20190201, end: 20190201
  5. MESNEX [Suspect]
     Active Substance: MESNA
     Dosage: SECOND CYCLE OF PROTOCOL TREATMENT
     Route: 042
     Dates: start: 20190403
  6. CYCLOPHOSPHAMIDE FOR INJECTION, USP [Suspect]
     Active Substance: CYCLOPHOSPHAMIDE
     Dosage: SECOND CYCLE OF PROTOCOL TREATMENT
     Route: 042
     Dates: start: 20190403
  7. INOTUZUMAB OZOGAMICIN [Suspect]
     Active Substance: INOTUZUMAB OZOGAMICIN
     Dosage: 0.3 MG/M2 CYCLIC (OVER 1 HOUR ON DAY 3); LAST DOSE PRIOR TO SAE
     Route: 042
     Dates: start: 20190205, end: 20190205
  8. DEXAMETHASONE. [Suspect]
     Active Substance: DEXAMETHASONE
     Dosage: SECOND CYCLE OF PROTOCOL TREATMENT
     Route: 042
     Dates: start: 20190403
  9. ZYLOPRIM [Concomitant]
     Active Substance: ALLOPURINOL
     Indication: PRODUCT USED FOR UNKNOWN INDICATION
     Route: 065
  10. ULTRAM ER [Concomitant]
     Active Substance: TRAMADOL HYDROCHLORIDE
     Indication: PRODUCT USED FOR UNKNOWN INDICATION
     Route: 065
  11. PRILOSEC [Concomitant]
     Active Substance: OMEPRAZOLE MAGNESIUM
     Indication: PRODUCT USED FOR UNKNOWN INDICATION
     Route: 065
  12. GLYCOLAX [Concomitant]
     Active Substance: POLYETHYLENE GLYCOL 3350
     Indication: PRODUCT USED FOR UNKNOWN INDICATION
     Route: 065
  13. SENOKOT-S [Concomitant]
     Active Substance: DOCUSATE SODIUM\SENNOSIDES
     Indication: PRODUCT USED FOR UNKNOWN INDICATION
     Route: 065
  14. MESNEX [Suspect]
     Active Substance: MESNA
     Indication: ACUTE LYMPHOCYTIC LEUKAEMIA
     Dosage: REGIMEN A: CYCLES: 1, 3, 7, 9: 300 MG/M2 CYCLIC (DAILY OVER 24 HOURS FOR 3 DAYS ON DAYS 1-3)
     Route: 042
     Dates: start: 20190129
  15. VINCRISTINE SULFATE. [Suspect]
     Active Substance: VINCRISTINE SULFATE
     Dosage: LAST DOSE PRIOR TO SAE
     Route: 042
     Dates: start: 20190205, end: 20190205
  16. RITUXIMAB. [Suspect]
     Active Substance: RITUXIMAB
     Indication: ACUTE LYMPHOCYTIC LEUKAEMIA
     Dosage: REGIMEN A: CYCLES: 1, 3, 7, 9: 375 MG/M2 CYCLIC (ON DAY 2 AND DAY 8 -CYCLES 1 AND 3 ONLY)
     Route: 042
  17. HUMALOG [Concomitant]
     Active Substance: INSULIN LISPRO
     Indication: PRODUCT USED FOR UNKNOWN INDICATION
     Route: 065
  18. K-DUR [Concomitant]
     Active Substance: POTASSIUM CHLORIDE
     Indication: PRODUCT USED FOR UNKNOWN INDICATION
     Route: 065
  19. CYCLOPHOSPHAMIDE FOR INJECTION, USP [Suspect]
     Active Substance: CYCLOPHOSPHAMIDE
     Indication: ACUTE LYMPHOCYTIC LEUKAEMIA
     Dosage: REGIMEN A: CYCLES: 1, 3, 7, 9: 150 MG/M2 CYCLIC (OVER 3 HOURS TWICE A DAY ON DAYS 1-3)
     Route: 042
     Dates: start: 20190129
  20. CYCLOPHOSPHAMIDE FOR INJECTION, USP [Suspect]
     Active Substance: CYCLOPHOSPHAMIDE
     Dosage: LAST DOSE PRIOR TO SAE
     Route: 042
     Dates: start: 20190201, end: 20190201
  21. INOTUZUMAB OZOGAMICIN [Suspect]
     Active Substance: INOTUZUMAB OZOGAMICIN
     Indication: ACUTE LYMPHOCYTIC LEUKAEMIA
     Dosage: REGIMEN A: CYCLES: 1, 3, 7, 9: 0.3 MG/M2 OVER 1 HOUR ON DAY 2 AND 8 OF CYCLES 1 AND 3 (APPROXIMATE)
     Route: 042
     Dates: start: 20190131
  22. VINCRISTINE SULFATE. [Suspect]
     Active Substance: VINCRISTINE SULFATE
     Indication: ACUTE LYMPHOCYTIC LEUKAEMIA
     Dosage: REGIMEN A: CYCLES: 1, 3, 7, 9: 2 MG CYCLIC (DAY 1 AND DAY 8)
     Route: 042
     Dates: start: 20190130
  23. RITUXIMAB. [Suspect]
     Active Substance: RITUXIMAB
     Dosage: SECOND CYCLE OF PROTOCOL TREATMENT
     Route: 042
     Dates: start: 20190403
  24. ZOVIRAX [Concomitant]
     Active Substance: ACYCLOVIR
     Indication: PRODUCT USED FOR UNKNOWN INDICATION
     Route: 065
  25. ZOFRAN [Concomitant]
     Active Substance: ONDANSETRON HYDROCHLORIDE
     Indication: PRODUCT USED FOR UNKNOWN INDICATION
     Route: 065
  26. DEXAMETHASONE. [Suspect]
     Active Substance: DEXAMETHASONE
     Indication: ACUTE LYMPHOCYTIC LEUKAEMIA
     Dosage: REGIMEN A: CYCLES: 1, 3, 7, 9: 20 MG CYCLIC (DAILY FOR 4 DAYS ON DAYS 1-4 AND DAYS 11-14),
     Route: 042
  27. LANTUS [Concomitant]
     Active Substance: INSULIN GLARGINE
     Indication: PRODUCT USED FOR UNKNOWN INDICATION
     Route: 065
  28. SYNTHROID [Concomitant]
     Active Substance: LEVOTHYROXINE SODIUM
     Indication: PRODUCT USED FOR UNKNOWN INDICATION
     Route: 065
  29. VINCRISTINE SULFATE. [Suspect]
     Active Substance: VINCRISTINE SULFATE
     Dosage: SECOND CYCLE OF PROTOCOL TREATMENT
     Route: 042
     Dates: start: 20190403
  30. PEGFILGRASTIM [Suspect]
     Active Substance: PEGFILGRASTIM
     Dosage: SECOND CYCLE OF PROTOCOL TREATMENT
     Route: 058
     Dates: start: 20190403
  31. PREVIDENT [Concomitant]
     Active Substance: SODIUM FLUORIDE
     Indication: PRODUCT USED FOR UNKNOWN INDICATION
     Route: 065
  32. HYZAAR [Concomitant]
     Active Substance: HYDROCHLOROTHIAZIDE\LOSARTAN POTASSIUM
     Indication: PRODUCT USED FOR UNKNOWN INDICATION
     Route: 065
  33. INOTUZUMAB OZOGAMICIN [Suspect]
     Active Substance: INOTUZUMAB OZOGAMICIN
     Dosage: SECOND CYCLE OF PROTOCOL TREATMENT
     Route: 042
     Dates: start: 20190403
  34. PAROEX [Concomitant]
     Active Substance: CHLORHEXIDINE GLUCONATE
     Indication: PRODUCT USED FOR UNKNOWN INDICATION
     Route: 065
  35. ACTIGALL [Concomitant]
     Active Substance: URSODIOL
     Indication: PRODUCT USED FOR UNKNOWN INDICATION
     Route: 065

REACTIONS (2)
  - Hyperglycaemia [Recovered/Resolved]
  - Sepsis [Recovered/Resolved]

NARRATIVE: CASE EVENT DATE: 20190212
